FAERS Safety Report 13624935 (Version 1)
Quarter: 2017Q2

REPORT INFORMATION
  Report Type: Spontaneous
  Country: CN (occurrence: CN)
  Receive Date: 20170608
  Receipt Date: 20170608
  Transmission Date: 20170830
  Serious: Yes (Hospitalization)
  Sender: FDA-Public Use
  Company Number: CN-OC PHARMA-000002

PATIENT
  Age: 27 Year
  Sex: Female

DRUGS (8)
  1. CEFAZOLIN [Concomitant]
     Active Substance: CEFAZOLIN
  2. IMIPENEM AND CILASTATIN [Concomitant]
     Active Substance: CILASTATIN SODIUM\IMIPENEM
  3. CEFTAZIDIME. [Concomitant]
     Active Substance: CEFTAZIDIME
  4. VANCOMYCIN [Concomitant]
     Active Substance: VANCOMYCIN
  5. CIPROFLOXACIN. [Concomitant]
     Active Substance: CIPROFLOXACIN
  6. LEVOFLOXACIN. [Concomitant]
     Active Substance: LEVOFLOXACIN
  7. LEVONORGESTREL. [Suspect]
     Active Substance: LEVONORGESTREL
     Indication: DYSFUNCTIONAL UTERINE BLEEDING
     Route: 015
  8. GENTAMYCIN [Concomitant]
     Active Substance: GENTAMICIN

REACTIONS (2)
  - Eosinophilia [Recovered/Resolved]
  - Peritoneal effluent leukocyte count increased [None]
